FAERS Safety Report 8505746-1 (Version None)
Quarter: 2012Q3

REPORT INFORMATION
  Report Type: 
  Country: None (occurrence: None)
  Receive Date: 20120712
  Receipt Date: 20120709
  Transmission Date: 20120928
  Serious: Yes (Other)
  Sender: FDA-Public Use
  Company Number: PHEH2012US005306

PATIENT
  Sex: Female

DRUGS (5)
  1. BENADRYL [Concomitant]
  2. GILENYA [Suspect]
     Dosage: 0.5 MG, PER DAY
     Route: 048
     Dates: end: 20111201
  3. VITAMIN D [Concomitant]
     Dosage: 1000 U, UNK
  4. TRIAZOLAM [Concomitant]
     Dosage: 0.25 MG, UNK
  5. CLARITIN [Concomitant]
     Dosage: 10 MG, UNK

REACTIONS (2)
  - DRUG INEFFECTIVE [None]
  - CENTRAL NERVOUS SYSTEM LESION [None]
